FAERS Safety Report 7939408-6 (Version None)
Quarter: 2011Q4

REPORT INFORMATION
  Report Type: 
  Country: None (occurrence: None)
  Receive Date: 20111125
  Receipt Date: 20111118
  Transmission Date: 20120403
  Serious: Yes (Other)
  Sender: FDA-Public Use
  Company Number: PHHY2011BR102182

PATIENT
  Age: 68 Year
  Sex: Female

DRUGS (1)
  1. BUFFERIN [Suspect]
     Indication: CORONARY ARTERY DISEASE
     Dosage: 1 DF/DAY (30 CT)

REACTIONS (4)
  - DRUG DEPENDENCE [None]
  - ABDOMINAL PAIN UPPER [None]
  - WEIGHT DECREASED [None]
  - GASTRITIS [None]
